FAERS Safety Report 17027315 (Version 2)
Quarter: 2019Q4

REPORT INFORMATION
  Report Type: Spontaneous
  Country: US (occurrence: US)
  Receive Date: 20191113
  Receipt Date: 20191211
  Transmission Date: 20200122
  Serious: No
  Sender: FDA-Public Use
  Company Number: US-ASTRAZENECA-2019SF47646

PATIENT
  Sex: Female

DRUGS (2)
  1. BYDUREON BCISE [Suspect]
     Active Substance: EXENATIDE
     Route: 058
  2. METFORMIN [Concomitant]
     Active Substance: METFORMIN HYDROCHLORIDE

REACTIONS (12)
  - Polyuria [Unknown]
  - Flatulence [Unknown]
  - Feeling jittery [Unknown]
  - Blood glucose increased [Unknown]
  - Hyperphagia [Unknown]
  - Injection site thrombosis [Unknown]
  - Muscle spasms [Unknown]
  - Injection site nodule [Not Recovered/Not Resolved]
  - Abdominal pain [Unknown]
  - Nocturia [Unknown]
  - Injection site pain [Unknown]
  - Device leakage [Unknown]
